FAERS Safety Report 4595338-1 (Version None)
Quarter: 2005Q1

REPORT INFORMATION
  Report Type: 
  Country: None (occurrence: None)
  Receive Date: 20050223
  Receipt Date: 20050210
  Transmission Date: 20050727
  Serious: Yes (Hospitalization)
  Sender: FDA-Public Use
  Company Number: 212523

PATIENT
  Age: 43 Year

DRUGS (4)
  1. MABTHERA (RITUXIMAB) CONC FOR SOLUTION FOR INFUSION [Suspect]
     Dosage: 750 MG, INTRAVENOUS
     Route: 042
     Dates: start: 20041202, end: 20041209
  2. ALLOPURINOL [Concomitant]
  3. PIRITON (CHLORPHENIRAMINE MALEATE) [Concomitant]
  4. ACETAMINOPHEN [Concomitant]

REACTIONS (4)
  - EYE SWELLING [None]
  - FEELING ABNORMAL [None]
  - LOWER RESPIRATORY TRACT INFECTION [None]
  - RASH [None]
